FAERS Safety Report 9807631 (Version 1)
Quarter: 2014Q1

REPORT INFORMATION
  Report Type: Spontaneous
  Country: CN (occurrence: CN)
  Receive Date: 20140110
  Receipt Date: 20140110
  Transmission Date: 20141002
  Serious: Yes (Other)
  Sender: FDA-Public Use
  Company Number: CN-SA-2014SA001205

PATIENT
  Age: 48 Year
  Sex: Female
  Weight: 60 kg

DRUGS (3)
  1. LANTUS [Suspect]
     Indication: DIABETES MELLITUS
     Route: 058
     Dates: start: 20131220, end: 20131221
  2. CLIKSTAR [Concomitant]
     Indication: DEVICE THERAPY
     Dates: start: 20131220
  3. CAPTOPRIL [Concomitant]
     Route: 048
     Dates: start: 2008

REACTIONS (3)
  - Retinal haemorrhage [Unknown]
  - Vision blurred [Unknown]
  - Blood glucose increased [Not Recovered/Not Resolved]
